FAERS Safety Report 8913001 (Version 1)
Quarter: 2012Q4

REPORT INFORMATION
  Report Type: Spontaneous
  Country: US (occurrence: None)
  Receive Date: 20121114
  Receipt Date: 20121114
  Transmission Date: 20130627
  Serious: Yes (Life-Threatening, Hospitalization, Other)
  Sender: FDA-Public Use
  Company Number: None

PATIENT
  Age: 69 Year
  Sex: Male
  Weight: 107.05 kg

DRUGS (1)
  1. PROPOFOL [Suspect]
     Indication: COLONOSCOPY
     Route: 041
     Dates: start: 20121107, end: 20121107

REACTIONS (8)
  - Unresponsive to stimuli [None]
  - Overdose [None]
  - Glassy eyes [None]
  - Aphasia [None]
  - Aggression [None]
  - Eye movement disorder [None]
  - Amnesia [None]
  - Drug interaction [None]
